FAERS Safety Report 25218313 (Version 1)
Quarter: 2025Q2

REPORT INFORMATION
  Report Type: Report from Study
  Country: DE (occurrence: DE)
  Receive Date: 20250421
  Receipt Date: 20250421
  Transmission Date: 20250717
  Serious: Yes (Other)
  Sender: SANDOZ
  Company Number: DE-SANDOZ-SDZ2025DE022447

PATIENT
  Sex: Male

DRUGS (28)
  1. ETANERCEPT [Suspect]
     Active Substance: ETANERCEPT
     Indication: Product used for unknown indication
     Route: 065
     Dates: start: 201807
  2. ETANERCEPT [Suspect]
     Active Substance: ETANERCEPT
     Route: 065
     Dates: start: 202302
  3. ETANERCEPT [Suspect]
     Active Substance: ETANERCEPT
     Route: 065
  4. ETANERCEPT [Suspect]
     Active Substance: ETANERCEPT
     Route: 065
  5. ETANERCEPT [Suspect]
     Active Substance: ETANERCEPT
     Route: 065
  6. ETANERCEPT [Suspect]
     Active Substance: ETANERCEPT
     Route: 065
  7. ETANERCEPT [Suspect]
     Active Substance: ETANERCEPT
     Route: 065
  8. ETANERCEPT [Suspect]
     Active Substance: ETANERCEPT
     Route: 065
  9. ETANERCEPT [Suspect]
     Active Substance: ETANERCEPT
     Route: 065
  10. METHOTREXATE [Suspect]
     Active Substance: METHOTREXATE
     Indication: Product used for unknown indication
     Route: 065
  11. METHOTREXATE [Suspect]
     Active Substance: METHOTREXATE
     Route: 065
  12. METHOTREXATE [Suspect]
     Active Substance: METHOTREXATE
     Route: 065
  13. METHOTREXATE [Suspect]
     Active Substance: METHOTREXATE
     Route: 065
  14. METHOTREXATE [Suspect]
     Active Substance: METHOTREXATE
     Route: 065
  15. METHOTREXATE [Suspect]
     Active Substance: METHOTREXATE
     Route: 065
  16. METHOTREXATE [Suspect]
     Active Substance: METHOTREXATE
     Route: 065
  17. METHOTREXATE [Suspect]
     Active Substance: METHOTREXATE
     Route: 065
  18. METHOTREXATE [Suspect]
     Active Substance: METHOTREXATE
     Route: 065
  19. METHOTREXATE [Suspect]
     Active Substance: METHOTREXATE
     Route: 065
  20. METHOTREXATE [Suspect]
     Active Substance: METHOTREXATE
     Route: 065
  21. METHOTREXATE [Suspect]
     Active Substance: METHOTREXATE
     Route: 065
  22. METHOTREXATE [Suspect]
     Active Substance: METHOTREXATE
     Route: 065
  23. METHOTREXATE [Suspect]
     Active Substance: METHOTREXATE
     Route: 065
  24. METHOTREXATE [Suspect]
     Active Substance: METHOTREXATE
     Route: 065
  25. METHOTREXATE [Suspect]
     Active Substance: METHOTREXATE
     Route: 065
  26. ORENCIA [Suspect]
     Active Substance: ABATACEPT
     Indication: Product used for unknown indication
     Route: 065
  27. TOCILIZUMAB [Suspect]
     Active Substance: TOCILIZUMAB
     Indication: Product used for unknown indication
     Route: 065
     Dates: start: 202304, end: 202307
  28. YUFLYMA [Suspect]
     Active Substance: ADALIMUMAB-AATY
     Indication: Product used for unknown indication
     Route: 065
     Dates: start: 202302, end: 202304

REACTIONS (4)
  - Prostate cancer [Not Recovered/Not Resolved]
  - Haematuria [Not Recovered/Not Resolved]
  - Proteinuria [Not Recovered/Not Resolved]
  - Transaminases increased [Unknown]

NARRATIVE: CASE EVENT DATE: 20230418
